FAERS Safety Report 12645517 (Version 1)
Quarter: 2016Q3

REPORT INFORMATION
  Report Type: Spontaneous
  Country: FR (occurrence: FR)
  Receive Date: 20160811
  Receipt Date: 20160811
  Transmission Date: 20161109
  Serious: Yes (Other)
  Sender: FDA-Public Use
  Company Number: FR-SA-2016SA144868

PATIENT
  Age: 53 Year
  Sex: Female

DRUGS (4)
  1. STILNOX [Suspect]
     Active Substance: ZOLPIDEM TARTRATE
     Indication: FLATULENCE
     Dosage: 10 MG FILM- COATED DIVISIBLE TABLET
     Route: 048
     Dates: start: 2015
  2. STILNOX [Suspect]
     Active Substance: ZOLPIDEM TARTRATE
     Indication: ERUCTATION
     Dosage: 10 MG FILM- COATED DIVISIBLE TABLET
     Route: 048
  3. STILNOX [Suspect]
     Active Substance: ZOLPIDEM TARTRATE
     Indication: FLATULENCE
     Dosage: 10 MG FILM- COATED DIVISIBLE TABLET
     Route: 048
  4. STILNOX [Suspect]
     Active Substance: ZOLPIDEM TARTRATE
     Indication: ERUCTATION
     Dosage: 10 MG FILM- COATED DIVISIBLE TABLET
     Route: 048
     Dates: start: 2015

REACTIONS (3)
  - Intentional product misuse [Unknown]
  - Product use issue [Unknown]
  - Intentional overdose [Unknown]
